FAERS Safety Report 16120831 (Version 1)
Quarter: 2019Q1

REPORT INFORMATION
  Report Type: Spontaneous
  Country: KE (occurrence: KE)
  Receive Date: 20190327
  Receipt Date: 20190327
  Transmission Date: 20190418
  Serious: Yes (Other)
  Sender: FDA-Public Use
  Company Number: KE-CIPLA LTD.-2019KE01507

PATIENT

DRUGS (16)
  1. DARUNAVIR [Suspect]
     Active Substance: DARUNAVIR
     Dosage: UNK
     Route: 065
     Dates: start: 201801
  2. ZIDOVUDINE. [Suspect]
     Active Substance: ZIDOVUDINE
     Dosage: UNK, (AZIDOTHYMIDINE)
     Route: 065
     Dates: start: 201709
  3. LAMIVUDINE. [Suspect]
     Active Substance: LAMIVUDINE
     Dosage: UNK
     Route: 065
     Dates: start: 2014
  4. ZIDOVUDINE. [Suspect]
     Active Substance: ZIDOVUDINE
     Indication: HIV INFECTION CDC CATEGORY A
     Dosage: UNK
     Route: 065
     Dates: start: 2014
  5. DOLUTEGRAVIR [Suspect]
     Active Substance: DOLUTEGRAVIR
     Dosage: UNK
     Route: 065
     Dates: start: 201801
  6. RITONAVIR. [Suspect]
     Active Substance: RITONAVIR
     Dosage: UNK
     Route: 065
     Dates: start: 201801
  7. LAMIVUDINE. [Suspect]
     Active Substance: LAMIVUDINE
     Indication: HIV INFECTION CDC CATEGORY A
     Dosage: UNK
     Route: 065
     Dates: start: 2011
  8. LAMIVUDINE. [Suspect]
     Active Substance: LAMIVUDINE
     Dosage: UNK
     Route: 065
     Dates: start: 201801
  9. RALTEGRAVIR. [Suspect]
     Active Substance: RALTEGRAVIR
     Indication: HIV INFECTION CDC CATEGORY A
     Dosage: UNK
     Route: 065
     Dates: start: 2011
  10. LAMIVUDINE. [Suspect]
     Active Substance: LAMIVUDINE
     Dosage: UNK
     Route: 065
     Dates: start: 2015
  11. DARUNAVIR [Suspect]
     Active Substance: DARUNAVIR
     Indication: HIV INFECTION CDC CATEGORY A
     Dosage: UNK
     Route: 065
     Dates: start: 2014
  12. DOLUTEGRAVIR [Suspect]
     Active Substance: DOLUTEGRAVIR
     Indication: HIV INFECTION CDC CATEGORY A
     Dosage: UNK
     Route: 065
     Dates: start: 2015
  13. RITONAVIR. [Suspect]
     Active Substance: RITONAVIR
     Indication: HIV INFECTION CDC CATEGORY A
     Dosage: UNK
     Route: 065
     Dates: start: 201709
  14. ABACAVIR. [Suspect]
     Active Substance: ABACAVIR
     Indication: HIV INFECTION CDC CATEGORY A
     Dosage: UNK
     Route: 065
     Dates: start: 2011
  15. ABACAVIR. [Suspect]
     Active Substance: ABACAVIR
     Dosage: UNK
     Route: 065
     Dates: start: 2015
  16. ETRAVIRINE [Suspect]
     Active Substance: ETRAVIRINE
     Indication: HIV INFECTION CDC CATEGORY A
     Dosage: UNK
     Route: 065
     Dates: start: 2014

REACTIONS (5)
  - Cachexia [Unknown]
  - Diarrhoea [Unknown]
  - Anaemia [Unknown]
  - Virologic failure [Unknown]
  - Fatigue [Unknown]
